FAERS Safety Report 7352970-X (Version None)
Quarter: 2011Q1

REPORT INFORMATION
  Report Type: 
  Country: None (occurrence: None)
  Receive Date: 20110315
  Receipt Date: 20110308
  Transmission Date: 20110831
  Serious: Yes (Hospitalization)
  Sender: FDA-Public Use
  Company Number: A0789076A

PATIENT
  Age: 76 Year
  Sex: Female
  Weight: 117.3 kg

DRUGS (2)
  1. ROSIGLITAZONE MALEATE [Suspect]
     Route: 048
     Dates: start: 20050215, end: 20070107
  2. AVANDIA [Suspect]
     Dosage: 4MG PER DAY
     Route: 065
     Dates: start: 20050201, end: 20070101

REACTIONS (2)
  - RENAL FAILURE [None]
  - CARDIAC FAILURE CONGESTIVE [None]
